FAERS Safety Report 20094906 (Version 1)
Quarter: 2021Q4

REPORT INFORMATION
  Report Type: Spontaneous
  Country: US (occurrence: US)
  Receive Date: 20211122
  Receipt Date: 20211122
  Transmission Date: 20220303
  Serious: Yes (Hospitalization)
  Sender: FDA-Public Use
  Company Number: US-HETERO-HET2021US02151

PATIENT
  Age: 65 Year
  Sex: Female

DRUGS (1)
  1. HYDRALAZINE [Suspect]
     Active Substance: HYDRALAZINE HYDROCHLORIDE
     Indication: Hypertension
     Dosage: 25 MG THREE TIMES A DAY FOR THREE YEARS
     Route: 065

REACTIONS (2)
  - Vasculitis [Recovering/Resolving]
  - Lupus nephritis [Not Recovered/Not Resolved]
